FAERS Safety Report 6522979-4 (Version None)
Quarter: 2009Q4

REPORT INFORMATION
  Report Type: 
  Country: None (occurrence: None)
  Receive Date: 20091230
  Receipt Date: 20091217
  Transmission Date: 20100525
  Serious: Yes (Congenital Anomaly)
  Sender: FDA-Public Use
  Company Number: GB-WATSON-2009-11010

PATIENT
  Sex: Female

DRUGS (2)
  1. LAMOTRIGINE (WATSON LABORATORIES) [Suspect]
     Indication: EPILEPSY
     Dosage: 200 MG, DAILY
     Route: 064
  2. TOPIRAMATE [Suspect]
     Indication: EPILEPSY
     Dosage: 250 MG, DAILY
     Route: 064

REACTIONS (2)
  - HERNIA [None]
  - HYDROCELE [None]
